FAERS Safety Report 9077342 (Version 2)
Quarter: 2013Q2

REPORT INFORMATION
  Report Type: Spontaneous
  Country: CA (occurrence: CA)
  Receive Date: 20130130
  Receipt Date: 20130605
  Transmission Date: 20140414
  Serious: Yes (Other)
  Sender: FDA-Public Use
  Company Number: PHHY2013CA006903

PATIENT
  Sex: Male

DRUGS (3)
  1. TEGRETOL CR [Suspect]
     Indication: CONVULSION
     Dosage: 600 MG, (MOTHER DOSE)
     Route: 064
  2. TEGRETOL CR [Suspect]
     Dosage: 600 MG, (MOTHER DOSE)
     Route: 063
  3. FOLIC ACID [Concomitant]
     Route: 064

REACTIONS (5)
  - Deafness [Unknown]
  - Hypoacusis [Unknown]
  - Speech disorder developmental [Unknown]
  - Foetal exposure during pregnancy [Unknown]
  - Exposure during breast feeding [Unknown]
